FAERS Safety Report 8927776 (Version 1)
Quarter: 2012Q4

REPORT INFORMATION
  Report Type: 
  Country: PL (occurrence: PL)
  Receive Date: 20121127
  Receipt Date: 20121127
  Transmission Date: 20130627
  Serious: Yes (Other)
  Sender: FDA-Public Use
  Company Number: PHHY2012PL105459

PATIENT
  Sex: Male

DRUGS (1)
  1. IMATINIB [Suspect]
     Indication: CHRONIC MYELOID LEUKAEMIA
     Dosage: 400 mg, UNK
     Dates: end: 20120704

REACTIONS (3)
  - Lung neoplasm malignant [Unknown]
  - Second primary malignancy [Unknown]
  - Diarrhoea [Unknown]
